FAERS Safety Report 9625749 (Version 2)
Quarter: 2013Q4

REPORT INFORMATION
  Report Type: Spontaneous
  Country: FR (occurrence: FR)
  Receive Date: 20131016
  Receipt Date: 20131216
  Transmission Date: 20140711
  Serious: Yes (Hospitalization)
  Sender: FDA-Public Use
  Company Number: PHHY2013FR113690

PATIENT
  Age: 89 Year
  Sex: Female

DRUGS (12)
  1. ESIDREX [Suspect]
     Indication: HYPERTENSION
     Dosage: 25 MG, QD
     Route: 048
     Dates: end: 20130807
  2. PAROXETINE HCL TABLETS [Suspect]
     Indication: DEPRESSION
     Dosage: 20 MG, QD
     Route: 048
     Dates: end: 20130807
  3. ZOLPIDEM [Suspect]
     Dosage: 1.5 DF, QD
     Route: 048
  4. LOSARTAN POTASSIUM [Suspect]
     Dosage: 50 MG, QD
     Route: 048
  5. ALPRAZOLAM [Suspect]
     Dosage: 0.25 MG, QD
     Route: 048
  6. NORSET [Suspect]
     Dosage: 15 MG, QD
     Route: 048
  7. PRADAXA [Concomitant]
     Indication: ATRIAL FIBRILLATION
     Dosage: 110 MG, BID (IN THE MORNING AND IN THE NIGHT)
     Route: 048
  8. TAHOR [Concomitant]
     Dosage: 20 MG, QD
     Route: 048
  9. OMEPRAZOLE [Concomitant]
     Dosage: 20 MG, QHS (IN NIGHT)
     Route: 048
  10. MIANSERIN HYDROCHLORIDE [Concomitant]
     Dosage: 10 MG, QD (EVENING)
     Route: 048
  11. FUROSEMIDE [Concomitant]
     Dosage: 40 MG, QD
     Route: 048
  12. CORGARD [Concomitant]
     Dosage: 0.5 DF, QD (80 MG)
     Route: 048

REACTIONS (2)
  - Hyponatraemia [Recovered/Resolved]
  - Fall [Recovered/Resolved]
